FAERS Safety Report 9031404 (Version 1)
Quarter: 2013Q1

REPORT INFORMATION
  Report Type: Report from Study
  Country: JP (occurrence: JP)
  Receive Date: 20130124
  Receipt Date: 20130124
  Transmission Date: 20140127
  Serious: Yes (Other)
  Sender: FDA-Public Use
  Company Number: JP-PFIZER INC-2013013790

PATIENT
  Age: 71 Year
  Sex: Male
  Weight: 47.1 kg

DRUGS (2)
  1. VFEND [Suspect]
     Indication: BRONCHOPULMONARY ASPERGILLOSIS
     Dosage: 200 MG, 1X/DAY
     Route: 048
     Dates: start: 20080625
  2. TARCEVA [Suspect]
     Indication: LUNG ADENOCARCINOMA
     Dosage: 150 MG, 1X/DAY
     Route: 048
     Dates: start: 20080709, end: 20080728

REACTIONS (2)
  - Interstitial lung disease [Recovering/Resolving]
  - Rash [Recovered/Resolved]
